FAERS Safety Report 11772830 (Version 1)
Quarter: 2015Q4

REPORT INFORMATION
  Report Type: Report from Study
  Country: US (occurrence: US)
  Receive Date: 20151124
  Receipt Date: 20151124
  Transmission Date: 20160304
  Serious: Yes (Other)
  Sender: FDA-Public Use
  Company Number: US-JNJFOC-20151120405

PATIENT
  Age: 66 Year
  Sex: Female

DRUGS (2)
  1. REMICADE [Suspect]
     Active Substance: INFLIXIMAB
     Indication: RHEUMATOID ARTHRITIS
     Route: 042
  2. REMICADE [Suspect]
     Active Substance: INFLIXIMAB
     Indication: RHEUMATOID ARTHRITIS
     Route: 042
     Dates: start: 20151104, end: 20151104

REACTIONS (10)
  - Erythema [Unknown]
  - Dyspnoea [Unknown]
  - Palpitations [Unknown]
  - Hypertension [Unknown]
  - Chest discomfort [Unknown]
  - Infusion related reaction [Unknown]
  - Nonspecific reaction [Unknown]
  - Swelling face [Unknown]
  - Heart rate increased [Unknown]
  - Disorientation [Unknown]

NARRATIVE: CASE EVENT DATE: 20151104
